FAERS Safety Report 13586142 (Version 1)
Quarter: 2017Q2

REPORT INFORMATION
  Report Type: Spontaneous
  Country: US (occurrence: US)
  Receive Date: 20170526
  Receipt Date: 20170526
  Transmission Date: 20170830
  Serious: Yes (Other)
  Sender: FDA-Public Use
  Company Number: None

PATIENT
  Age: 55 Year
  Sex: Female
  Weight: 58.11 kg

DRUGS (15)
  1. QVAR [Concomitant]
     Active Substance: BECLOMETHASONE DIPROPIONATE
  2. COD LIVER OIL [Concomitant]
     Active Substance: COD LIVER OIL
  3. ACETAMINOPHEN-COD #3 [Suspect]
     Active Substance: ACETAMINOPHEN\CODEINE PHOSPHATE
     Indication: SURGERY
     Dosage: ?          QUANTITY:?3 PILLS) CLOSE,;?
     Route: 048
     Dates: start: 20170407, end: 20170408
  4. ACETAMINOPHEN. [Concomitant]
     Active Substance: ACETAMINOPHEN
  5. GUARANA [Concomitant]
  6. OLOPATADINE HYDROCLORIDE [Concomitant]
  7. NASACORT [Concomitant]
     Active Substance: TRIAMCINOLONE ACETONIDE
  8. K [Concomitant]
  9. C [Concomitant]
  10. ZINC PICOLINATE [Concomitant]
     Active Substance: ZINC PICOLINATE
  11. PROBIOTICS [Concomitant]
     Active Substance: PROBIOTICS NOS
  12. SUDAFED [Concomitant]
     Active Substance: PSEUDOEPHEDRINE HYDROCHLORIDE
  13. B-50 [Concomitant]
  14. VITAMIN D [Concomitant]
     Active Substance: CHOLECALCIFEROL
  15. ALLEGRA [Concomitant]
     Active Substance: FEXOFENADINE HYDROCHLORIDE

REACTIONS (3)
  - Nausea [None]
  - Gastrointestinal disorder [None]
  - Drug effect decreased [None]

NARRATIVE: CASE EVENT DATE: 20170408
